FAERS Safety Report 8612214-5 (Version None)
Quarter: 2012Q3

REPORT INFORMATION
  Report Type: 
  Country: None (occurrence: None)
  Receive Date: 20120813
  Receipt Date: 20120813
  Transmission Date: 20120928
  Serious: Yes (Other)
  Sender: FDA-Public Use
  Company Number: None

PATIENT
  Sex: Female
  Weight: 65.7716 kg

DRUGS (2)
  1. LOSARTAN POTASSIUM [Suspect]
     Indication: BLOOD PRESSURE
     Dates: start: 20100729
  2. LOSARTAN POTASSIUM [Suspect]
     Indication: BLOOD PRESSURE
     Dates: start: 20110806

REACTIONS (14)
  - HEADACHE [None]
  - SOMNOLENCE [None]
  - COUGH [None]
  - POLYMYALGIA RHEUMATICA [None]
  - FLATULENCE [None]
  - BLOOD PRESSURE ABNORMAL [None]
  - ARTHRALGIA [None]
  - ARTHRITIS [None]
  - NERVOUSNESS [None]
  - PAIN IN EXTREMITY [None]
  - BACK PAIN [None]
  - SLEEP DISORDER [None]
  - INSOMNIA [None]
  - FATIGUE [None]
